FAERS Safety Report 4313032-9 (Version None)
Quarter: 2004Q1

REPORT INFORMATION
  Report Type: 
  Country: None (occurrence: None)
  Receive Date: 20040305
  Receipt Date: 20040109
  Transmission Date: 20041129
  Serious: Yes (Hospitalization)
  Sender: FDA-Public Use
  Company Number: 7145

PATIENT
  Age: 41 Year
  Sex: Female

DRUGS (5)
  1. MITOMYCIN-C BULK POWDER [Suspect]
     Indication: COLON CANCER METASTATIC
     Dosage: 11.4 MG ONCE ,   IV
     Route: 042
     Dates: start: 20031121, end: 20031121
  2. CAPECITABINE [Concomitant]
  3. FLUOROURACIL [Concomitant]
  4. DEXAMETHASONE [Concomitant]
  5. GRANISETRON [Concomitant]

REACTIONS (1)
  - INFLUENZA LIKE ILLNESS [None]
